FAERS Safety Report 25157484 (Version 1)
Quarter: 2025Q2

REPORT INFORMATION
  Report Type: Spontaneous
  Country: US (occurrence: US)
  Receive Date: 20250403
  Receipt Date: 20250403
  Transmission Date: 20250716
  Serious: Yes (Other)
  Sender: TONIX PHARMACEUTICALS
  Company Number: US-TONIX MEDICINES, INC.-2025TNX00013

PATIENT
  Age: 57 Year
  Sex: Male

DRUGS (3)
  1. ZEMBRACE SYMTOUCH [Suspect]
     Active Substance: SUMATRIPTAN SUCCINATE
     Route: 065
  2. ASPIRIN [Suspect]
     Active Substance: ASPIRIN
     Dosage: 81 MG, 1X/DAY
  3. TRAZODONE [Suspect]
     Active Substance: TRAZODONE HYDROCHLORIDE

REACTIONS (2)
  - Drug interaction [Recovered/Resolved]
  - Arteriospasm coronary [Recovered/Resolved]
